FAERS Safety Report 5190985-0 (Version None)
Quarter: 2006Q4

REPORT INFORMATION
  Report Type: 
  Country: None (occurrence: None)
  Receive Date: 20061224
  Receipt Date: 20061122
  Transmission Date: 20070319
  Serious: Yes (Hospitalization)
  Sender: FDA-Public Use
  Company Number: JP-ELI_LILLY_AND_COMPANY-JP200611005349

PATIENT
  Age: 45 Year
  Sex: Male
  Weight: 63.4 kg

DRUGS (8)
  1. ZYPREXA [Suspect]
     Indication: MENTAL RETARDATION SEVERITY UNSPECIFIED
     Dosage: 5 MG, DAILY (1/D)
     Route: 048
     Dates: start: 20060817, end: 20060910
  2. ZYPREXA [Suspect]
     Dosage: 5 MG, 2/D
     Route: 048
     Dates: start: 20060911, end: 20061016
  3. ZYPREXA [Suspect]
     Dosage: 5 MG, 3/D
     Route: 048
     Dates: start: 20061017, end: 20061107
  4. BIPERIDEN HYDROCHLORIDE TAB [Concomitant]
     Indication: AKATHISIA
     Dosage: 1 MG, DAILY (1/D)
     Dates: start: 20060810, end: 20060830
  5. BIPERIDEN HYDROCHLORIDE TAB [Concomitant]
     Dosage: 1 MG, 3/D
     Dates: start: 20060831, end: 20061122
  6. MAGNESIUM OXIDE [Concomitant]
     Indication: CONSTIPATION
     Dosage: 0.5 G, 3/D
     Dates: start: 20061106, end: 20061122
  7. NELUROLEN [Concomitant]
     Indication: INSOMNIA
     Dosage: 10 MG, DAILY (1/D)
     Dates: start: 20060906, end: 20061122
  8. QUETIAPINE FUMARATE [Concomitant]
     Dosage: 400 MG, DAILY (1/D)
     Dates: start: 20061108, end: 20061122

REACTIONS (3)
  - CONSTIPATION [None]
  - INSOMNIA [None]
  - PANCYTOPENIA [None]
